FAERS Safety Report 14533216 (Version 1)
Quarter: 2018Q1

REPORT INFORMATION
  Report Type: Report from Study
  Country: CA (occurrence: CA)
  Receive Date: 20180215
  Receipt Date: 20180215
  Transmission Date: 20180509
  Serious: Yes (Death, Hospitalization, Other)
  Sender: FDA-Public Use
  Company Number: CA-BRISTOL-MYERS SQUIBB COMPANY-BMS-2017-098166

PATIENT
  Sex: Female

DRUGS (3)
  1. YERVOY [Suspect]
     Active Substance: IPILIMUMAB
     Indication: MALIGNANT MELANOMA
     Dosage: Q3WK
     Route: 065
     Dates: start: 20171027, end: 20171115
  2. NIVOLUMAB [Suspect]
     Active Substance: NIVOLUMAB
     Indication: MALIGNANT MELANOMA
     Dosage: Q3WK
     Route: 065
     Dates: start: 20171027, end: 20171115
  3. HYDROMORPHONE [Concomitant]
     Active Substance: HYDROMORPHONE
     Indication: PRODUCT USED FOR UNKNOWN INDICATION
     Route: 065

REACTIONS (7)
  - Abdominal pain [Unknown]
  - Vomiting [Unknown]
  - Nausea [Unknown]
  - Insomnia [Unknown]
  - Decreased appetite [Unknown]
  - Death [Fatal]
  - Hospitalisation [Unknown]
